FAERS Safety Report 8163042-9 (Version None)
Quarter: 2012Q1

REPORT INFORMATION
  Report Type: 
  Country: None (occurrence: None)
  Receive Date: 20120224
  Receipt Date: 20120217
  Transmission Date: 20120608
  Serious: Yes (Other)
  Sender: FDA-Public Use
  Company Number: US-ROXANE LABORATORIES, INC.-2012-RO-00677RO

PATIENT
  Age: 14 Year
  Sex: Male

DRUGS (3)
  1. LITHIUM CARBONATE [Suspect]
     Indication: BIPOLAR DISORDER
     Dosage: 600 MG
  2. RISPERDAL [Concomitant]
     Indication: PSYCHOTIC DISORDER
  3. TOPAMAX [Concomitant]
     Indication: TOURETTE'S DISORDER

REACTIONS (2)
  - SEIZURE LIKE PHENOMENA [None]
  - ANTIPSYCHOTIC DRUG LEVEL BELOW THERAPEUTIC [None]
